FAERS Safety Report 21661984 (Version 1)
Quarter: 2022Q4

REPORT INFORMATION
  Report Type: Spontaneous
  Country: US (occurrence: US)
  Receive Date: 20221130
  Receipt Date: 20221130
  Transmission Date: 20230112
  Serious: Yes (Hospitalization)
  Sender: FDA-Public Use
  Company Number: US-STRIDES ARCOLAB LIMITED-2022SP011639

PATIENT
  Age: 67 Year
  Sex: Male
  Weight: 132 kg

DRUGS (18)
  1. GABAPENTIN [Suspect]
     Active Substance: GABAPENTIN
     Indication: Neck pain
     Dosage: UNK
     Route: 065
  2. GABAPENTIN [Suspect]
     Active Substance: GABAPENTIN
     Indication: Back pain
  3. GABAPENTIN [Suspect]
     Active Substance: GABAPENTIN
     Indication: Musculoskeletal chest pain
  4. CYCLOBENZAPRINE [Suspect]
     Active Substance: CYCLOBENZAPRINE
     Indication: Neck pain
     Dosage: UNK
     Route: 065
  5. CYCLOBENZAPRINE [Suspect]
     Active Substance: CYCLOBENZAPRINE
     Indication: Back pain
  6. CYCLOBENZAPRINE [Suspect]
     Active Substance: CYCLOBENZAPRINE
     Indication: Musculoskeletal chest pain
  7. BACLOFEN [Suspect]
     Active Substance: BACLOFEN
     Indication: Neck pain
     Dosage: UNK
     Route: 065
  8. BACLOFEN [Suspect]
     Active Substance: BACLOFEN
     Indication: Back pain
  9. BACLOFEN [Suspect]
     Active Substance: BACLOFEN
     Indication: Musculoskeletal chest pain
  10. ACETAMINOPHEN [Suspect]
     Active Substance: ACETAMINOPHEN
     Indication: Neck pain
     Dosage: UNK
     Route: 065
  11. ACETAMINOPHEN [Suspect]
     Active Substance: ACETAMINOPHEN
     Indication: Back pain
  12. ACETAMINOPHEN [Suspect]
     Active Substance: ACETAMINOPHEN
     Indication: Musculoskeletal chest pain
  13. CLONIDINE [Concomitant]
     Active Substance: CLONIDINE
     Indication: Neck pain
     Dosage: UNK
     Route: 065
  14. CLONIDINE [Concomitant]
     Active Substance: CLONIDINE
     Indication: Back pain
  15. CLONIDINE [Concomitant]
     Active Substance: CLONIDINE
     Indication: Musculoskeletal chest pain
  16. HYDROMORPHONE [Concomitant]
     Active Substance: HYDROMORPHONE
     Indication: Neck pain
     Dosage: UNK
     Route: 065
  17. HYDROMORPHONE [Concomitant]
     Active Substance: HYDROMORPHONE
     Indication: Back pain
  18. HYDROMORPHONE [Concomitant]
     Active Substance: HYDROMORPHONE
     Indication: Musculoskeletal chest pain

REACTIONS (2)
  - Drug ineffective [Unknown]
  - Off label use [Unknown]
